FAERS Safety Report 9897629 (Version 1)
Quarter: 2014Q1

REPORT INFORMATION
  Report Type: Spontaneous
  Country: FR (occurrence: FR)
  Receive Date: 20140214
  Receipt Date: 20140214
  Transmission Date: 20141002
  Serious: Yes (Hospitalization)
  Sender: FDA-Public Use
  Company Number: FR-ABBVIE-14P-056-1200409-00

PATIENT
  Age: 52 Year
  Sex: Male

DRUGS (7)
  1. KALETRA [Suspect]
     Indication: HIV INFECTION
     Dates: start: 201303, end: 20131229
  2. BACTRIM [Suspect]
     Indication: PRODUCT USED FOR UNKNOWN INDICATION
     Dates: start: 20131217, end: 20131226
  3. METRONIDAZOLE BAXTER 0,5 POUR CENT, SOLUTION INJECTABLE EN POCHE [Suspect]
     Indication: PRODUCT USED FOR UNKNOWN INDICATION
     Dates: start: 20131217, end: 20131229
  4. CEFOTAXIME PANPHARMA [Suspect]
     Indication: PRODUCT USED FOR UNKNOWN INDICATION
     Dates: start: 20131219, end: 20131229
  5. RETROVIR [Suspect]
     Indication: PRODUCT USED FOR UNKNOWN INDICATION
     Dates: start: 201303, end: 20131226
  6. ZIAGEN [Concomitant]
     Indication: PRODUCT USED FOR UNKNOWN INDICATION
  7. CEFTRIAXONE [Concomitant]
     Indication: PRODUCT USED FOR UNKNOWN INDICATION
     Dosage: ONLY ONE INJECTION
     Dates: start: 20131217

REACTIONS (3)
  - Pancytopenia [Recovered/Resolved]
  - Abdominal pain [Unknown]
  - Diarrhoea [Unknown]
